FAERS Safety Report 8762777 (Version 1)
Quarter: 2012Q4

REPORT INFORMATION
  Report Type: 
  Country: US (occurrence: US)
  Receive Date: 20120829
  Receipt Date: 20120829
  Transmission Date: 20130627
  Serious: No
  Sender: FDA-Public Use
  Company Number: US-PFIZER INC-2012207770

PATIENT
  Age: 62 Year
  Sex: Female
  Weight: 95.24 kg

DRUGS (2)
  1. ADVIL MIGRAINE [Suspect]
     Indication: HEADACHE
     Dosage: 200 mg, weekly
     Dates: start: 2012
  2. ADVIL MIGRAINE [Suspect]
     Dosage: 400 mg, UNK
     Dates: start: 201208, end: 201208

REACTIONS (4)
  - Drug ineffective [Unknown]
  - Dizziness [Recovered/Resolved]
  - Presyncope [Recovered/Resolved]
  - Feeling abnormal [Recovered/Resolved]
